FAERS Safety Report 20623019 (Version 1)
Quarter: 2022Q1

REPORT INFORMATION
  Report Type: Spontaneous
  Country: US (occurrence: None)
  Receive Date: 20220322
  Receipt Date: 20220322
  Transmission Date: 20220424
  Serious: No
  Sender: FDA-Public Use
  Company Number: None

PATIENT
  Age: 54 Year
  Sex: Female
  Weight: 117.03 kg

DRUGS (4)
  1. ENBREL [Suspect]
     Active Substance: ETANERCEPT
     Indication: Rheumatoid arthritis
     Dosage: INJECT 50MG  SUBCUTANEOUSLY ONCE WEEKLY  AS DIRECTED?
     Route: 058
     Dates: start: 201311
  2. ENBREL [Suspect]
     Active Substance: ETANERCEPT
  3. RINVOQ [Suspect]
     Active Substance: UPADACITINIB
     Dosage: TAKE 1 TABLET BY MOUTH DAILY  AS DIRECTED
     Route: 048
     Dates: start: 202203
  4. RINVOQ [Suspect]
     Active Substance: UPADACITINIB

REACTIONS (2)
  - Therapy non-responder [None]
  - Pain [None]
